FAERS Safety Report 19644867 (Version 2)
Quarter: 2021Q3

REPORT INFORMATION
  Report Type: Other
  Country: DE (occurrence: DE)
  Receive Date: 20210802
  Receipt Date: 20210820
  Transmission Date: 20211014
  Serious: Yes (Hospitalization, Other)
  Sender: FDA-Public Use
  Company Number: DE-CELLTRION INC.-2021DE010012

PATIENT

DRUGS (6)
  1. PERJETA [Suspect]
     Active Substance: PERTUZUMAB
     Indication: HER2 POSITIVE BREAST CANCER
     Dosage: 840 MG, (IN COMBINATION WITH HERCEPTIN AND PACLITAXEL)
     Route: 042
     Dates: start: 20210222, end: 20210222
  2. HERZUMA [Suspect]
     Active Substance: TRASTUZUMAB-PKRB
     Indication: HER2 POSITIVE BREAST CANCER
     Dosage: 676 MG, EVERY 3 WEEK (IN COMBINATION WITH PERJETA AND PACLITAXEL)
     Route: 042
  3. NAB?PACLITAXEL [Suspect]
     Active Substance: PACLITAXEL
     Indication: HER2 POSITIVE BREAST CANCER
     Dosage: UNK, 1/WEEK (IN COMBINATION WITH PERJETA AND HERCEPTIN)
     Route: 042
     Dates: start: 20210125
  4. DEXAMETHASONE. [Concomitant]
     Active Substance: DEXAMETHASONE
     Indication: PROPHYLAXIS OF NAUSEA AND VOMITING
     Dosage: 8 MG, 1/WEEK
     Route: 042
     Dates: start: 20210125
  5. DEXAMETHASONE. [Concomitant]
     Active Substance: DEXAMETHASONE
     Dosage: 8 MG, 1/WEEK (2 X 4 MG)
     Route: 048
  6. GRANISETRON [Concomitant]
     Active Substance: GRANISETRON
     Indication: PROPHYLAXIS OF NAUSEA AND VOMITING
     Dosage: 1 MG, 1/WEEK
     Route: 042

REACTIONS (7)
  - Hypertension [Recovered/Resolved]
  - Dyspnoea [Recovered/Resolved]
  - Ejection fraction decreased [Unknown]
  - Pleural effusion [Unknown]
  - Tachycardia [Recovered/Resolved]
  - Off label use [Unknown]
  - General physical health deterioration [Unknown]

NARRATIVE: CASE EVENT DATE: 20210222
